FAERS Safety Report 8799711 (Version 1)
Quarter: 2012Q4

REPORT INFORMATION
  Report Type: Spontaneous
  Country: DK (occurrence: None)
  Receive Date: 20120914
  Receipt Date: 20120914
  Transmission Date: 20130627
  Serious: Yes (Life-Threatening)
  Sender: FDA-Public Use
  Company Number: 2012MA011014

PATIENT
  Age: 54 Year
  Sex: Female

DRUGS (5)
  1. CARBOPLATIN [Suspect]
     Indication: MALIGNANT NEOPLASM OF OVARY
     Route: 042
     Dates: start: 20120627, end: 20120627
  2. DEXAVEN [Concomitant]
  3. CLEMASTINE [Concomitant]
  4. RANIGAST [Concomitant]
  5. ZOFRAN [Concomitant]

REACTIONS (5)
  - Hypersensitivity [None]
  - Dyspnoea [None]
  - Chest pain [None]
  - Asthenia [None]
  - Vomiting [None]
